FAERS Safety Report 17545968 (Version 1)
Quarter: 2020Q1

REPORT INFORMATION
  Report Type: Spontaneous
  Country: NO (occurrence: NO)
  Receive Date: 20200316
  Receipt Date: 20200316
  Transmission Date: 20200409
  Serious: Yes (Hospitalization, Other)
  Sender: FDA-Public Use
  Company Number: NVSC2020NO038588

PATIENT
  Age: 30 Year
  Sex: Female

DRUGS (5)
  1. DIOVAN [Concomitant]
     Active Substance: VALSARTAN
     Indication: PRODUCT USED FOR UNKNOWN INDICATION
     Route: 065
  2. GILENYA [Suspect]
     Active Substance: FINGOLIMOD HYDROCHLORIDE
     Dosage: UNK,4 TABLETS/WEEK
     Route: 065
     Dates: start: 201909
  3. GILENYA [Suspect]
     Active Substance: FINGOLIMOD HYDROCHLORIDE
     Dosage: UNK,6 TABLETS
     Route: 065
     Dates: start: 201901
  4. GILENYA [Suspect]
     Active Substance: FINGOLIMOD HYDROCHLORIDE
     Dosage: UNK 5 TABLETS/WEEKS
     Route: 065
     Dates: start: 201907
  5. GILENYA [Suspect]
     Active Substance: FINGOLIMOD HYDROCHLORIDE
     Indication: MULTIPLE SCLEROSIS
     Dosage: UNK,FULL DOSE
     Route: 065
     Dates: start: 20180515

REACTIONS (5)
  - Lymphocyte count decreased [Not Recovered/Not Resolved]
  - Oral herpes [Recovered/Resolved]
  - Nephrolithiasis [Unknown]
  - Urosepsis [Recovered/Resolved]
  - Prescribed underdose [Unknown]

NARRATIVE: CASE EVENT DATE: 20180606
